FAERS Safety Report 5748764-9 (Version None)
Quarter: 2008Q2

REPORT INFORMATION
  Report Type: 
  Country: None (occurrence: None)
  Receive Date: 20080522
  Receipt Date: 20080505
  Transmission Date: 20081010
  Serious: Yes (Hospitalization)
  Sender: FDA-Public Use
  Company Number: 2008AL003466

PATIENT
  Age: 73 Year
  Sex: Male

DRUGS (10)
  1. DIGOXIN [Suspect]
  2. LOPRESSOR [Concomitant]
  3. DIGOXIN [Concomitant]
  4. AMARYL [Concomitant]
  5. INSULIN [Concomitant]
  6. PLAVIX [Concomitant]
  7. DIAVAN [Concomitant]
  8. QUINAPRIL (ACCUPRIL) [Concomitant]
  9. LASIX [Concomitant]
  10. NEXIUM [Concomitant]

REACTIONS (1)
  - MYOCARDIAL INFARCTION [None]
